FAERS Safety Report 6290777-5 (Version None)
Quarter: 2009Q3

REPORT INFORMATION
  Report Type: 
  Country: None (occurrence: None)
  Receive Date: 20090729
  Receipt Date: 20090729
  Transmission Date: 20100115
  Serious: Yes (Other)
  Sender: FDA-Public Use
  Company Number: None

PATIENT
  Age: 6 Year
  Sex: Male
  Weight: 21.3191 kg

DRUGS (1)
  1. SINGULAIR [Suspect]
     Indication: HYPERSENSITIVITY
     Dosage: ONE TABLET DAILY PO
     Route: 048
     Dates: start: 20090622, end: 20090701

REACTIONS (3)
  - FEAR [None]
  - HALLUCINATION [None]
  - PHOBIA [None]
